FAERS Safety Report 5809022-7 (Version None)
Quarter: 2008Q3

REPORT INFORMATION
  Report Type: 
  Country: None (occurrence: None)
  Receive Date: 20080714
  Receipt Date: 20080710
  Transmission Date: 20090109
  Serious: Yes (Death, Other)
  Sender: FDA-Public Use
  Company Number: JP-BRISTOL-MYERS SQUIBB COMPANY-14251151

PATIENT
  Age: 75 Year
  Sex: Female

DRUGS (9)
  1. CYCLOPHOSPHAMIDE [Suspect]
     Indication: DIFFUSE LARGE B-CELL LYMPHOMA
  2. DOXORUBICIN HCL [Suspect]
     Indication: DIFFUSE LARGE B-CELL LYMPHOMA
  3. VINCRISTINE SULFATE [Suspect]
     Indication: DIFFUSE LARGE B-CELL LYMPHOMA
  4. RITUXIMAB [Suspect]
     Indication: DIFFUSE LARGE B-CELL LYMPHOMA
  5. PREDNISOLONE [Suspect]
     Indication: DIFFUSE LARGE B-CELL LYMPHOMA
  6. DEXAMETHASONE [Suspect]
     Dosage: DOSAGES:16MG/D,12MG/D,8MG/D,6MG/D,4MG/D,2 MG/D IN 1ST,2ND,3RD,4TH,5TH,6TH WKS.
  7. PROCARBAZINE [Suspect]
  8. METHOTREXATE [Suspect]
     Route: 037
  9. RADIOTHERAPY [Suspect]

REACTIONS (4)
  - ENCEPHALITIS CYTOMEGALOVIRUS [None]
  - ENCEPHALITIS HERPES [None]
  - MALIGNANT NEOPLASM PROGRESSION [None]
  - PNEUMONIA ASPIRATION [None]
